FAERS Safety Report 24264565 (Version 1)
Quarter: 2024Q3

REPORT INFORMATION
  Report Type: Spontaneous
  Country: CA (occurrence: CA)
  Receive Date: 20240829
  Receipt Date: 20240829
  Transmission Date: 20241017
  Serious: Yes (Hospitalization)
  Sender: DAIICHI
  Company Number: CA-AstraZeneca-2024A193785

PATIENT
  Sex: Female
  Weight: 46 kg

DRUGS (2)
  1. TRASTUZUMAB DERUXTECAN [Suspect]
     Active Substance: TRASTUZUMAB DERUXTECAN
     Indication: Breast cancer metastatic
     Dosage: 127 MG, ONCE EVERY 3 WK
     Route: 042
  2. TRASTUZUMAB DERUXTECAN [Suspect]
     Active Substance: TRASTUZUMAB DERUXTECAN
     Dosage: 215 MG, ONCE EVERY 3 WK
     Route: 042

REACTIONS (4)
  - Back pain [Unknown]
  - Neck pain [Unknown]
  - Pain [Unknown]
  - Pain in extremity [Unknown]
